FAERS Safety Report 10377968 (Version 5)
Quarter: 2014Q4

REPORT INFORMATION
  Report Type: Report from Study
  Country: SG (occurrence: SG)
  Receive Date: 20140812
  Receipt Date: 20141202
  Transmission Date: 20150528
  Serious: Yes (Hospitalization)
  Sender: FDA-Public Use
  Company Number: SG-BAYER-2014-116734

PATIENT
  Age: 62 Year
  Sex: Male
  Weight: 52 kg

DRUGS (10)
  1. METOCLOPRAMIDE. [Concomitant]
     Active Substance: METOCLOPRAMIDE
  2. SORAFENIB (RAF KINASE INHIBITOR) [Suspect]
     Active Substance: SORAFENIB
     Indication: HEPATOCELLULAR CARCINOMA
     Dosage: 400 MG, BID
     Dates: start: 20140609, end: 20140629
  3. NYSTATIN. [Concomitant]
     Active Substance: NYSTATIN
  4. LOPERAMIDE [Concomitant]
     Active Substance: LOPERAMIDE
  5. LACTULOSE. [Concomitant]
     Active Substance: LACTULOSE
  6. ATENOLOL. [Concomitant]
     Active Substance: ATENOLOL
  7. NIFEDIPINE. [Concomitant]
     Active Substance: NIFEDIPINE
  8. SORAFENIB (RAF KINASE INHIBITOR) [Suspect]
     Active Substance: SORAFENIB
     Indication: HEPATOCELLULAR CARCINOMA
     Dosage: 400 MG, BID
     Dates: start: 20140707, end: 20140724
  9. PROCTOSEDYL [CINCHOCAINE HYDROCHLORIDE,HYDROCORTISONE] [Concomitant]
  10. OMEPRAZOLE. [Concomitant]
     Active Substance: OMEPRAZOLE

REACTIONS (7)
  - Haemorrhoids [Recovered/Resolved]
  - Lower respiratory tract infection [Recovered/Resolved]
  - Haematochezia [Recovered/Resolved]
  - Pyrexia [Recovered/Resolved]
  - Pneumonia [Recovered/Resolved]
  - Colitis [Recovered/Resolved]
  - Pulmonary embolism [Recovered/Resolved]

NARRATIVE: CASE EVENT DATE: 20140627
